FAERS Safety Report 12502983 (Version 2)
Quarter: 2016Q3

REPORT INFORMATION
  Report Type: Spontaneous
  Country: GB (occurrence: GB)
  Receive Date: 20160628
  Receipt Date: 20160714
  Transmission Date: 20161109
  Serious: Yes (Hospitalization, Other)
  Sender: FDA-Public Use
  Company Number: GB-TEVA-670012ACC

PATIENT
  Age: 42 Year
  Sex: Female

DRUGS (8)
  1. APREPITANT. [Suspect]
     Active Substance: APREPITANT
     Dosage: 80 MILLIGRAM DAILY; 80 MG, ONCE A DAY (TAKEN ON DAY 2 AND 3 AFTER CHEMOTHERAPY)
     Route: 048
  2. METOCLOPRAMIDE. [Suspect]
     Active Substance: METOCLOPRAMIDE
     Dosage: UNK
  3. DOCETAXEL. [Suspect]
     Active Substance: DOCETAXEL
     Dosage: 3 CYCLES
  4. FLUOROURACIL. [Suspect]
     Active Substance: FLUOROURACIL
     Dosage: UNK, EVERY 3 WEEKS (CYCLICAL)
  5. NEULASTA [Suspect]
     Active Substance: PEGFILGRASTIM
     Dosage: 6 MG, 24 HOURS AFTER CHEMOTHERAPY
     Route: 058
  6. DEXAMETHASONE. [Suspect]
     Active Substance: DEXAMETHASONE
     Dosage: 2 MILLIGRAM DAILY; 2 MG, ONCE DAILY, 3 DAYS
     Route: 048
  7. ONDANSETRON [Suspect]
     Active Substance: ONDANSETRON
     Dosage: UNK
  8. LEVOMEPROMAZINE [Suspect]
     Active Substance: LEVOMEPROMAZINE
     Dosage: UNK

REACTIONS (11)
  - Deep vein thrombosis [Not Recovered/Not Resolved]
  - Peripheral swelling [Unknown]
  - Constipation [Unknown]
  - Pain in extremity [Unknown]
  - Fatigue [Unknown]
  - Arthralgia [Unknown]
  - Decreased appetite [Unknown]
  - Deep vein thrombosis [Unknown]
  - Vascular pain [Unknown]
  - Pain [Unknown]
  - Oral pain [Unknown]

NARRATIVE: CASE EVENT DATE: 2016
